FAERS Safety Report 25049108 (Version 1)
Quarter: 2025Q1

REPORT INFORMATION
  Report Type: Spontaneous
  Country: None (occurrence: US)
  Receive Date: 20250307
  Receipt Date: 20250307
  Transmission Date: 20250408
  Serious: Yes (Disabling, Other)
  Sender: TEVA
  Company Number: US-TEVA-VS-3303689

PATIENT
  Age: 68 Year
  Sex: Female

DRUGS (1)
  1. UZEDY [Suspect]
     Active Substance: RISPERIDONE
     Indication: Off label use
     Dosage: 100/0.28MG/ML
     Route: 065

REACTIONS (3)
  - Disability [Unknown]
  - Off label use [Unknown]
  - Product dose omission issue [Unknown]

NARRATIVE: CASE EVENT DATE: 20250210
